FAERS Safety Report 23080913 (Version 3)
Quarter: 2024Q1

REPORT INFORMATION
  Report Type: Other
  Country: CA (occurrence: None)
  Receive Date: 20231018
  Receipt Date: 20240125
  Transmission Date: 20240410
  Serious: Yes (Other)
  Sender: FDA-Public Use
  Company Number: CA-ROCHE-3386367

PATIENT
  Age: 48 Year
  Sex: Female
  Weight: 55 kg

DRUGS (9)
  1. PERJETA [Suspect]
     Active Substance: PERTUZUMAB
     Indication: Breast cancer
     Route: 042
     Dates: start: 20230516, end: 20230516
  2. PERJETA [Suspect]
     Active Substance: PERTUZUMAB
     Route: 042
     Dates: start: 20230606
  3. OCREVUS [Suspect]
     Active Substance: OCRELIZUMAB
     Indication: Relapsing-remitting multiple sclerosis
     Dosage: 300 MG AT DAY 0 AND 14, THEN 600 MG EVERY 6 MONTHS
     Route: 042
     Dates: start: 20221124
  4. FERROUS FUMARATE [Concomitant]
     Active Substance: FERROUS FUMARATE
     Dosage: DRUG DOSE FIRST ADMINISTERED
  5. PEGFILGRASTIM [Concomitant]
     Active Substance: PEGFILGRASTIM
  6. NYSTATIN [Concomitant]
     Active Substance: NYSTATIN
  7. PANTOPRAZOLE SODIUM [Concomitant]
     Active Substance: PANTOPRAZOLE SODIUM
  8. PROCHLORPERAZINE [Concomitant]
     Active Substance: PROCHLORPERAZINE
  9. TRASTUZUMAB [Concomitant]
     Active Substance: TRASTUZUMAB

REACTIONS (3)
  - Oxygen saturation decreased [Unknown]
  - Blood pressure increased [Unknown]
  - Blood pressure diastolic increased [Unknown]

NARRATIVE: CASE EVENT DATE: 20230830
